FAERS Safety Report 6480381-8 (Version None)
Quarter: 2009Q4

REPORT INFORMATION
  Report Type: 
  Country: None (occurrence: None)
  Receive Date: 20091208
  Receipt Date: 20091109
  Transmission Date: 20100525
  Serious: No
  Sender: FDA-Public Use
  Company Number: US-BAYER-200916719BCC

PATIENT
  Sex: Male
  Weight: 82 kg

DRUGS (6)
  1. ALEVE [Suspect]
     Indication: BACK PAIN
     Dosage: TOTAL DAILY DOSE: 220 MG  UNIT DOSE: 220 MG
     Route: 048
  2. OMETROZOLE [Concomitant]
     Route: 065
  3. ASPIRIN [Concomitant]
     Route: 065
  4. CENTRUM SILVER [Concomitant]
     Route: 065
  5. SPRING VALLEY FISH OIL [Concomitant]
     Route: 065
  6. SPRING VALLEY FLAX OIL [Concomitant]
     Route: 065

REACTIONS (1)
  - CHROMATURIA [None]
